FAERS Safety Report 11606951 (Version 1)
Quarter: 2015Q4

REPORT INFORMATION
  Report Type: Spontaneous
  Country: US (occurrence: US)
  Receive Date: 20151007
  Receipt Date: 20151007
  Transmission Date: 20160304
  Serious: No
  Sender: FDA-Public Use
  Company Number: US-HORIZON-VIM-0109-2015

PATIENT
  Age: 45 Year
  Sex: Female
  Weight: 92.5 kg

DRUGS (21)
  1. CLONIDINE. [Concomitant]
     Active Substance: CLONIDINE
     Indication: BLOOD PRESSURE ABNORMAL
     Dosage: DAILY DOSE: 0.2 MG MILLGRAM(S) EVERY DAYS
  2. SYMBICORT [Suspect]
     Active Substance: BUDESONIDE\FORMOTEROL FUMARATE DIHYDRATE
     Indication: CHRONIC OBSTRUCTIVE PULMONARY DISEASE
     Dosage: 320 TWICE DAILY
     Route: 055
  3. SPIRIVA [Concomitant]
     Active Substance: TIOTROPIUM BROMIDE MONOHYDRATE
     Route: 055
  4. CELEXA [Concomitant]
     Active Substance: CITALOPRAM HYDROBROMIDE
     Indication: DEPRESSION
     Dosage: DAILY DOSE: 40 MG MILLGRAM(S) EVERY DAYS
     Dates: start: 1996
  5. CLARITIN [Concomitant]
     Active Substance: LORATADINE
  6. PANTOL [Concomitant]
     Active Substance: DEXPANTHENOL
     Indication: EYE PRURITUS
     Dosage: DAILY
  7. VIMOVO [Suspect]
     Active Substance: ESOMEPRAZOLE MAGNESIUM\NAPROXEN
     Indication: ARTHRITIS
     Dosage: 500/20 MG TWICE DAILY
     Route: 048
     Dates: start: 201107, end: 201108
  8. VISTARIL [Concomitant]
     Active Substance: HYDROXYZINE PAMOATE
     Indication: ANXIETY
     Dosage: DAILY DOSE: 100 ?G MICROGRAM(S) EVERY DAYS
     Dates: start: 1996
  9. XANAX [Concomitant]
     Active Substance: ALPRAZOLAM
     Indication: ANXIETY
     Dosage: 2MG AT NIGHT AND 1 MG DURING THE DAY IF NEEDED
  10. FLONASE [Concomitant]
     Active Substance: FLUTICASONE PROPIONATE
     Indication: MULTIPLE ALLERGIES
     Dosage: DAILY
  11. BACLOFEN. [Concomitant]
     Active Substance: BACLOFEN
     Indication: MUSCLE SPASMS
     Dosage: DAILY DOSE: 60 MG MILLGRAM(S) EVERY DAYS
  12. MORPHINE [Concomitant]
     Active Substance: MORPHINE
     Indication: BACK PAIN
     Dosage: DAILY DOSE: 60 MG MILLGRAM(S) EVERY DAYS
     Dates: start: 2015
  13. NEXIUM [Suspect]
     Active Substance: ESOMEPRAZOLE MAGNESIUM
     Indication: GASTROOESOPHAGEAL REFLUX DISEASE
     Dosage: 40 MG DAILY, INCREASED TO 80 MG DAILY
     Route: 048
     Dates: start: 2000
  14. CELEBREX [Concomitant]
     Active Substance: CELECOXIB
     Indication: PAIN
     Dosage: DAILY DOSE: 200 MG MILLGRAM(S) EVERY DAYS
     Dates: start: 2000
  15. LOVASTATIN. [Concomitant]
     Active Substance: LOVASTATIN
     Indication: BLOOD CHOLESTEROL ABNORMAL
     Dosage: DAILY DOSE: 20 MG MILLGRAM(S) EVERY DAYS
  16. LEVOTHYROXINE. [Concomitant]
     Active Substance: LEVOTHYROXINE
     Indication: HYPOTHYROIDISM
     Dosage: DAILY DOSE: 50 MG MILLGRAM(S) EVERY DAYS
  17. REGLAN [Suspect]
     Active Substance: METOCLOPRAMIDE HYDROCHLORIDE
     Indication: NAUSEA
     Dosage: DAILY DOSE: 3 DF DOSAGE FORM EVERY DAYS
     Route: 065
     Dates: start: 2007
  18. ZYRTEC [Concomitant]
     Active Substance: CETIRIZINE HYDROCHLORIDE
     Indication: MULTIPLE ALLERGIES
     Dosage: DAILY DOSE: 10 MG MILLGRAM(S) EVERY DAYS
     Dates: start: 2003
  19. ESCITALOPRAM [Concomitant]
     Active Substance: ESCITALOPRAM OXALATE
     Indication: DEPRESSION
     Dosage: DAILY DOSE: 10 MG MILLGRAM(S) EVERY DAYS
     Dates: start: 2015
  20. OXYCONT [Concomitant]
     Indication: BACK PAIN
     Dosage: DAILY DOSE: 120 MG MILLGRAM(S) EVERY DAYS
     Dates: start: 2010
  21. PERCOCET [Concomitant]
     Active Substance: ACETAMINOPHEN\OXYCODONE HYDROCHLORIDE
     Indication: PAIN
     Dosage: 10/325MG FOUR TIMES A DAY EVERY 4-6 HOURS AS NEEDED

REACTIONS (28)
  - Gastrooesophageal reflux disease [Unknown]
  - Malaise [Unknown]
  - Dyspepsia [Unknown]
  - Pain in jaw [Recovered/Resolved]
  - Chills [Unknown]
  - Hyperhidrosis [Unknown]
  - Drug prescribing error [Unknown]
  - Chronic obstructive pulmonary disease [Not Recovered/Not Resolved]
  - Throat irritation [Recovered/Resolved]
  - Fibromyalgia [Not Recovered/Not Resolved]
  - Chest discomfort [Recovered/Resolved]
  - Malaise [Not Recovered/Not Resolved]
  - Product use issue [Not Recovered/Not Resolved]
  - Off label use [Unknown]
  - Drug ineffective [Not Recovered/Not Resolved]
  - Nausea [Unknown]
  - Sleep apnoea syndrome [Unknown]
  - Intentional product misuse [Unknown]
  - Insomnia [Unknown]
  - Osteoarthritis [Not Recovered/Not Resolved]
  - Retching [Unknown]
  - Dizziness [Unknown]
  - Inappropriate schedule of drug administration [Unknown]
  - Hypertension [Not Recovered/Not Resolved]
  - Hypotension [Unknown]
  - Dyspepsia [Recovered/Resolved]
  - Drug dose omission [Unknown]
  - Intentional product misuse [Not Recovered/Not Resolved]

NARRATIVE: CASE EVENT DATE: 2002
